FAERS Safety Report 9397394 (Version 1)
Quarter: 2013Q3

REPORT INFORMATION
  Report Type: Spontaneous
  Country: FR (occurrence: FR)
  Receive Date: 20130712
  Receipt Date: 20130712
  Transmission Date: 20140515
  Serious: Yes (Life-Threatening, Other)
  Sender: FDA-Public Use
  Company Number: FR-ASTRAZENECA-2013SE51415

PATIENT
  Age: 23254 Day
  Sex: Female

DRUGS (8)
  1. INEXIUM [Suspect]
     Route: 048
     Dates: start: 20130604, end: 20130610
  2. BACTRIM [Suspect]
     Indication: PNEUMOCYSTIS JIROVECII PNEUMONIA
     Route: 042
     Dates: start: 20130604, end: 20130609
  3. CYMEVAN [Suspect]
     Indication: CYTOMEGALOVIRUS INFECTION
     Route: 042
     Dates: start: 20130607, end: 20130609
  4. CETIRIZINE ARROW [Suspect]
     Indication: URTICARIA CHRONIC
     Route: 048
     Dates: start: 201304, end: 20130610
  5. LEDERFOLINE [Suspect]
     Indication: HAEMATOTOXICITY
     Route: 048
     Dates: start: 20130607, end: 20130611
  6. SOLUPRED [Concomitant]
  7. DOLIPRANE [Concomitant]
     Dates: start: 20130604
  8. LOVENOX [Concomitant]
     Dates: start: 20130604

REACTIONS (6)
  - Eosinophilia [Recovered/Resolved with Sequelae]
  - Linear IgA disease [Recovering/Resolving]
  - Cytomegalovirus infection [Unknown]
  - Face oedema [Recovering/Resolving]
  - Tongue oedema [Recovering/Resolving]
  - Pruritus [Recovering/Resolving]
